FAERS Safety Report 8643727 (Version 2)
Quarter: 2016Q1

REPORT INFORMATION
  Report Type: Report from Study
  Country: US (occurrence: US)
  Receive Date: 20120629
  Receipt Date: 20160215
  Transmission Date: 20160526
  Serious: Yes (Death)
  Sender: FDA-Public Use
  Company Number: US-ROCHE-1082665

PATIENT
  Age: 61 Year
  Sex: Female

DRUGS (1)
  1. VALCYTE [Suspect]
     Active Substance: VALGANCICLOVIR HYDROCHLORIDE
     Indication: CYTOMEGALOVIRUS COLITIS
     Route: 048

REACTIONS (3)
  - End stage AIDS [Fatal]
  - Respiratory tract infection [Fatal]
  - Histoplasmosis disseminated [Fatal]

NARRATIVE: CASE EVENT DATE: 20111112
